FAERS Safety Report 12085725 (Version 2)
Quarter: 2016Q1

REPORT INFORMATION
  Report Type: Report from Study
  Country: LB (occurrence: LB)
  Receive Date: 20160217
  Receipt Date: 20160225
  Transmission Date: 20160526
  Serious: Yes (Death, Other)
  Sender: FDA-Public Use
  Company Number: PHHY2016LB019336

PATIENT
  Sex: Female

DRUGS (7)
  1. GILENYA [Suspect]
     Active Substance: FINGOLIMOD HYDROCHLORIDE
     Dosage: 0.5 MG, UNK
     Route: 048
     Dates: start: 20160206
  2. FOLIC ACID. [Concomitant]
     Active Substance: FOLIC ACID
     Indication: PREGNANCY
     Dosage: 1 DF, QD
     Route: 048
  3. SOLU-MEDROL [Suspect]
     Active Substance: METHYLPREDNISOLONE SODIUM SUCCINATE
     Indication: HYPOAESTHESIA
     Dosage: 250 MG, QD
     Route: 042
     Dates: start: 20160210
  4. MAGNESIUM + B6 [Concomitant]
     Indication: PREGNANCY
     Dosage: 1 DF, QD
     Route: 048
  5. CALCIUM [Concomitant]
     Active Substance: CALCIUM
     Indication: PREGNANCY
     Dosage: 1 DF, QD
     Route: 048
  6. GILENYA [Suspect]
     Active Substance: FINGOLIMOD HYDROCHLORIDE
     Indication: MULTIPLE SCLEROSIS
     Dosage: 0.5 MG, UNK
     Route: 048
     Dates: start: 20121018, end: 20150611
  7. SOLU-MEDROL [Suspect]
     Active Substance: METHYLPREDNISOLONE SODIUM SUCCINATE
     Indication: MUSCULAR WEAKNESS

REACTIONS (13)
  - Pulmonary embolism [Unknown]
  - Bradycardia [Fatal]
  - Pallor [Fatal]
  - Hyperhidrosis [Fatal]
  - Cardiac arrest [Fatal]
  - Dizziness [Fatal]
  - Syncope [Fatal]
  - Hypoaesthesia [Unknown]
  - Loss of consciousness [Fatal]
  - Muscular weakness [Unknown]
  - Dyspnoea [Fatal]
  - Hypertension [Unknown]
  - Drug monitoring procedure incorrectly performed [Unknown]

NARRATIVE: CASE EVENT DATE: 20160206
